FAERS Safety Report 13009271 (Version 1)
Quarter: 2016Q4

REPORT INFORMATION
  Report Type: Spontaneous
  Country: US (occurrence: US)
  Receive Date: 20161208
  Receipt Date: 20161208
  Transmission Date: 20170207
  Serious: No
  Sender: FDA-Public Use
  Company Number: GXBR2016US003009

PATIENT
  Sex: Female

DRUGS (1)
  1. CLOTRIMAZOLE AND BETAMETHASONE [Suspect]
     Active Substance: BETAMETHASONE\CLOTRIMAZOLE
     Indication: SCAR
     Dosage: UNK DF, UNK
     Route: 061

REACTIONS (1)
  - Incorrect drug administration duration [Unknown]
